FAERS Safety Report 25174429 (Version 3)
Quarter: 2025Q2

REPORT INFORMATION
  Report Type: Spontaneous
  Country: US (occurrence: US)
  Receive Date: 20250408
  Receipt Date: 20250525
  Transmission Date: 20250716
  Serious: No
  Sender: GLAXOSMITHKLINE
  Company Number: US-GSK-US2025AMR037637

PATIENT
  Age: 57 Year
  Sex: Female

DRUGS (2)
  1. BENLYSTA [Suspect]
     Active Substance: BELIMUMAB
     Indication: Systemic lupus erythematosus
     Dosage: 886 MG AT WEEKS 0, 2, 4, Q4W (120MG/400MG)
     Route: 042
  2. BENLYSTA [Suspect]
     Active Substance: BELIMUMAB
     Dosage: 886 MG, Q4W
     Route: 042

REACTIONS (8)
  - Pain in extremity [Unknown]
  - Burning sensation [Unknown]
  - Brain fog [Unknown]
  - Depression [Unknown]
  - Abdominal pain upper [Unknown]
  - Back pain [Unknown]
  - Vision blurred [Unknown]
  - Drug ineffective [Unknown]

NARRATIVE: CASE EVENT DATE: 20250301
